FAERS Safety Report 8833396 (Version 1)
Quarter: 2012Q4

REPORT INFORMATION
  Report Type: 
  Country: US (occurrence: US)
  Receive Date: 20121010
  Receipt Date: 20121010
  Transmission Date: 20130627
  Serious: Yes (Hospitalization)
  Sender: FDA-Public Use
  Company Number: US-JNJFOC-20121004516

PATIENT
  Age: 89 Year
  Sex: Female

DRUGS (3)
  1. XARELTO [Suspect]
     Indication: CEREBROVASCULAR ACCIDENT PROPHYLAXIS
     Dosage: for about one month
     Route: 048
     Dates: start: 201210, end: 20121003
  2. XARELTO [Suspect]
     Indication: ATRIAL FIBRILLATION
     Dosage: for about one month
     Route: 048
     Dates: start: 201210, end: 20121003
  3. XARELTO [Suspect]
     Indication: ATRIAL FLUTTER
     Dosage: for about one month
     Route: 048
     Dates: start: 201210, end: 20121003

REACTIONS (1)
  - Renal failure acute [Unknown]
